FAERS Safety Report 7208674-7 (Version None)
Quarter: 2011Q1

REPORT INFORMATION
  Report Type: 
  Country: None (occurrence: None)
  Receive Date: 20110104
  Receipt Date: 20101230
  Transmission Date: 20110831
  Serious: Yes (Hospitalization)
  Sender: FDA-Public Use
  Company Number: FR-ROCHE-751134

PATIENT
  Sex: Male
  Weight: 31 kg

DRUGS (4)
  1. ADVIL [Suspect]
     Route: 048
     Dates: start: 20101115, end: 20101117
  2. DOLIPRANE [Concomitant]
     Indication: PAIN
     Route: 048
     Dates: start: 20101119
  3. APRANAX [Suspect]
     Indication: PAIN
     Dosage: FORM: ONE SACHET.
     Route: 048
     Dates: start: 20101102, end: 20101115
  4. ADVIL [Suspect]
     Indication: PAIN
     Route: 048
     Dates: start: 20101026, end: 20101102

REACTIONS (4)
  - RASH [None]
  - HISTIOCYTOSIS HAEMATOPHAGIC [None]
  - RENAL FAILURE [None]
  - JAUNDICE [None]
